FAERS Safety Report 8602976-5 (Version None)
Quarter: 2012Q3

REPORT INFORMATION
  Report Type: 
  Country: None (occurrence: None)
  Receive Date: 20120817
  Receipt Date: 20120517
  Transmission Date: 20120928
  Serious: Yes (Other)
  Sender: FDA-Public Use
  Company Number: US-GLAXOSMITHKLINE-A0909185A

PATIENT
  Age: 62 Year
  Sex: Male
  Weight: 68.2 kg

DRUGS (14)
  1. INOSITOL [Concomitant]
  2. ASCORBIC ACID [Concomitant]
  3. VOTRIENT [Suspect]
     Indication: RENAL CELL CARCINOMA
     Dosage: 4TAB AT NIGHT
     Route: 048
  4. VITAMIN E [Concomitant]
  5. PANTOTHENIC ACID [Concomitant]
  6. VITAMIN B COMPLEX CAP [Concomitant]
  7. UNSPECIFIED MEDICATION [Concomitant]
  8. CALCIUM + MAGNESIUM [Concomitant]
  9. LECITHIN [Concomitant]
  10. GLUCOSAMINE + CHONDROITIN [Concomitant]
  11. MULTI-VITAMIN [Concomitant]
  12. CHOLINE BITARTRATE [Concomitant]
  13. VITAMIN A [Concomitant]
  14. BIOTIN [Concomitant]

REACTIONS (6)
  - FATIGUE [None]
  - DIARRHOEA [None]
  - WEIGHT DECREASED [None]
  - HEPATIC ENZYME INCREASED [None]
  - ARTHRALGIA [None]
  - MYALGIA [None]
